FAERS Safety Report 12056735 (Version 1)
Quarter: 2016Q1

REPORT INFORMATION
  Report Type: Spontaneous
  Country: DK (occurrence: DK)
  Receive Date: 20160209
  Receipt Date: 20160209
  Transmission Date: 20160526
  Serious: Yes (Disabling)
  Sender: FDA-Public Use
  Company Number: PHHY2016DK014369

PATIENT
  Sex: Male
  Weight: 84 kg

DRUGS (7)
  1. RISPERIDONE. [Suspect]
     Active Substance: RISPERIDONE
     Dosage: 1 MG, QD
     Route: 048
     Dates: start: 20150625, end: 20150708
  2. ABILIFY [Suspect]
     Active Substance: ARIPIPRAZOLE
     Dosage: 10 MG, QD
     Route: 048
     Dates: start: 20141003, end: 20150527
  3. ABILIFY [Suspect]
     Active Substance: ARIPIPRAZOLE
     Dosage: 5 MG, QD
     Route: 048
     Dates: start: 20130214, end: 20140902
  4. RISPERIDONE. [Suspect]
     Active Substance: RISPERIDONE
     Indication: MENTAL DISORDER
     Dosage: 2 MG, QD
     Route: 048
     Dates: start: 20150527, end: 20150625
  5. ABILIFY [Suspect]
     Active Substance: ARIPIPRAZOLE
     Dosage: 2 MG, QD
     Route: 048
     Dates: start: 20130114, end: 20130121
  6. ABILIFY [Suspect]
     Active Substance: ARIPIPRAZOLE
     Indication: MENTAL DISORDER
     Dosage: 3 MG, QD
     Route: 048
     Dates: start: 20130121, end: 20130214
  7. ABILIFY [Suspect]
     Active Substance: ARIPIPRAZOLE
     Dosage: 7.5 MG, QD
     Route: 048
     Dates: start: 20140902, end: 20141003

REACTIONS (6)
  - Speech disorder [Unknown]
  - Dyskinesia [Not Recovered/Not Resolved]
  - Muscle twitching [Recovering/Resolving]
  - Dystonia [Not Recovered/Not Resolved]
  - Posture abnormal [Recovering/Resolving]
  - Off label use [Unknown]
